FAERS Safety Report 5035409-9 (Version None)
Quarter: 2006Q2

REPORT INFORMATION
  Report Type: 
  Country: None (occurrence: None)
  Receive Date: 20060622
  Receipt Date: 20060616
  Transmission Date: 20061013
  Serious: Yes (Hospitalization, Other)
  Sender: FDA-Public Use
  Company Number: HQWYE252516JUN06

PATIENT
  Age: 22 Year
  Sex: Male

DRUGS (1)
  1. ADVIL [Suspect]
     Indication: ABDOMINAL PAIN
     Dosage: 10 TABLETS DAILY
     Route: 048
     Dates: start: 20060411, end: 20060414

REACTIONS (3)
  - ABDOMINAL PAIN [None]
  - INTENTIONAL OVERDOSE [None]
  - RENAL FAILURE ACUTE [None]
